FAERS Safety Report 9832072 (Version 1)
Quarter: 2014Q1

REPORT INFORMATION
  Report Type: Spontaneous
  Country: US (occurrence: US)
  Receive Date: 20140121
  Receipt Date: 20140121
  Transmission Date: 20141002
  Serious: Yes (Hospitalization, Other)
  Sender: FDA-Public Use
  Company Number: US-NOVOPROD-397917

PATIENT
  Age: 54 Year
  Sex: Female
  Weight: 67.12 kg

DRUGS (1)
  1. NOVOLOG FLEXPEN [Suspect]
     Indication: TYPE 1 DIABETES MELLITUS
     Dosage: SLIDING SCALE
     Route: 058
     Dates: start: 2010

REACTIONS (4)
  - Impaired gastric emptying [Recovered/Resolved]
  - Disease complication [Recovered/Resolved]
  - Diabetic coma [Recovered/Resolved]
  - Blood glucose increased [Not Recovered/Not Resolved]
